FAERS Safety Report 4296375-7 (Version None)
Quarter: 2004Q1

REPORT INFORMATION
  Report Type: 
  Country: None (occurrence: None)
  Receive Date: 20040213
  Receipt Date: 20040213
  Transmission Date: 20041129
  Serious: Yes (Hospitalization)
  Sender: FDA-Public Use
  Company Number: None

PATIENT
  Sex: Female
  Weight: 60.3284 kg

DRUGS (7)
  1. DEMEROL [Suspect]
     Indication: PAIN
     Dosage: 100 M IM Q3 H PRN
     Route: 030
     Dates: start: 20030831
  2. NORVASC [Concomitant]
  3. PROTONIX [Concomitant]
  4. LANTUS [Concomitant]
  5. LEXAPRO [Concomitant]
  6. REMERON [Concomitant]
  7. INSULIN [Concomitant]

REACTIONS (3)
  - COMA [None]
  - SALIVARY HYPERSECRETION [None]
  - TONIC CLONIC MOVEMENTS [None]
